FAERS Safety Report 8132141-X (Version None)
Quarter: 2012Q1

REPORT INFORMATION
  Report Type: 
  Country: None (occurrence: None)
  Receive Date: 20120213
  Receipt Date: 20120206
  Transmission Date: 20120608
  Serious: Yes (Other)
  Sender: FDA-Public Use
  Company Number: US-PFIZER INC-2012026387

PATIENT
  Sex: Female

DRUGS (2)
  1. DILANTIN-125 [Suspect]
     Indication: CONVULSION
     Dosage: 400 MG, 1X/DAY, AT BED TIME
     Route: 048
     Dates: start: 20001226
  2. DILANTIN-125 [Suspect]
     Dosage: 300 MG, 1X/DAY, AT BED TIME
     Route: 048
     Dates: start: 20010102, end: 20010129

REACTIONS (1)
  - STEVENS-JOHNSON SYNDROME [None]
